FAERS Safety Report 9695422 (Version 1)
Quarter: 2013Q4

REPORT INFORMATION
  Report Type: Spontaneous
  Country: NZ (occurrence: NZ)
  Receive Date: 20131119
  Receipt Date: 20131119
  Transmission Date: 20140711
  Serious: Yes (Other)
  Sender: FDA-Public Use
  Company Number: PHHY2013NZ129178

PATIENT
  Age: 25 Year
  Sex: Female

DRUGS (1)
  1. RITALIN [Suspect]
     Dosage: UNK UKN, UNK

REACTIONS (10)
  - Intentional drug misuse [Unknown]
  - Decreased appetite [Unknown]
  - Hyperhidrosis [Unknown]
  - Feeling jittery [Unknown]
  - Feeling abnormal [Unknown]
  - Asthenia [Unknown]
  - Irritability [Unknown]
  - Insomnia [Unknown]
  - Nausea [Unknown]
  - Wrong technique in drug usage process [Unknown]
